FAERS Safety Report 5636179-3 (Version None)
Quarter: 2008Q1

REPORT INFORMATION
  Report Type: 
  Country: None (occurrence: None)
  Receive Date: 20080212
  Receipt Date: 20080212
  Transmission Date: 20080703
  Serious: No
  Sender: FDA-Public Use
  Company Number: None

PATIENT
  Sex: Female
  Weight: 17.2367 kg

DRUGS (1)
  1. PROAIR HFA [Suspect]
     Indication: WHEEZING
     Dosage: 2 PUFFS Q4-6 HRS INHALED
     Route: 055
     Dates: start: 20080123, end: 20080208

REACTIONS (1)
  - URTICARIA [None]
